FAERS Safety Report 13498637 (Version 2)
Quarter: 2017Q3

REPORT INFORMATION
  Report Type: Spontaneous
  Country: US (occurrence: US)
  Receive Date: 20170501
  Receipt Date: 20170705
  Transmission Date: 20171127
  Serious: No
  Sender: FDA-Public Use
  Company Number: US-PFIZER INC-2017184085

PATIENT
  Age: 79 Year
  Sex: Female
  Weight: 56.24 kg

DRUGS (1)
  1. XELJANZ [Suspect]
     Active Substance: TOFACITINIB CITRATE
     Indication: EPILEPSY
     Dosage: 5 MG, 2X/DAY

REACTIONS (2)
  - Product use in unapproved indication [Unknown]
  - Anxiety [Unknown]
